FAERS Safety Report 19107300 (Version 1)
Quarter: 2021Q2

REPORT INFORMATION
  Report Type: Spontaneous
  Country: US (occurrence: US)
  Receive Date: 20210407
  Receipt Date: 20210407
  Transmission Date: 20210717
  Serious: Yes (Life-Threatening, Other)
  Sender: FDA-Public Use
  Company Number: None

PATIENT
  Age: 36 Year
  Sex: Female

DRUGS (2)
  1. PITOCIN [Suspect]
     Active Substance: OXYTOCIN
  2. BD ALARIS PUMP MIODULE SET [Suspect]
     Active Substance: DEVICE

REACTIONS (4)
  - Foetal distress syndrome [None]
  - Caesarean section [None]
  - Device failure [None]
  - Maternal exposure before pregnancy [None]

NARRATIVE: CASE EVENT DATE: 20210131
